FAERS Safety Report 9603860 (Version 1)
Quarter: 2013Q4

REPORT INFORMATION
  Report Type: Spontaneous
  Country: US (occurrence: US)
  Receive Date: 20131008
  Receipt Date: 20131008
  Transmission Date: 20140711
  Serious: No
  Sender: FDA-Public Use
  Company Number: US-009507513-1310USA002539

PATIENT
  Sex: Female

DRUGS (1)
  1. NUVARING [Suspect]
     Indication: CONTRACEPTION
     Dosage: 1 DF, UNK; STRENGTH: .12/.015 (UNITS NOT PROVIDED); ONE RING
     Route: 067

REACTIONS (2)
  - Cervix erythema [Unknown]
  - Vulvovaginal discomfort [Unknown]
